APPROVED DRUG PRODUCT: PROPOXYPHENE HYDROCHLORIDE
Active Ingredient: PROPOXYPHENE HYDROCHLORIDE
Strength: 65MG
Dosage Form/Route: CAPSULE;ORAL
Application: A083870 | Product #002
Applicant: SANDOZ INC
Approved: Approved Prior to Jan 1, 1982 | RLD: No | RS: No | Type: DISCN